FAERS Safety Report 19482588 (Version 5)
Quarter: 2023Q2

REPORT INFORMATION
  Report Type: Spontaneous
  Country: GB (occurrence: GB)
  Receive Date: 20210701
  Receipt Date: 20230519
  Transmission Date: 20230721
  Serious: Yes (Hospitalization, Disabling, Other)
  Sender: FDA-Public Use
  Company Number: GB-ADVANZ PHARMA-GSH201001-000283

PATIENT
  Age: 70 Year
  Sex: Male

DRUGS (21)
  1. WARFARIN SODIUM [Interacting]
     Active Substance: WARFARIN SODIUM
     Indication: Pulmonary embolism
     Dosage: UNK
  2. WARFARIN SODIUM [Interacting]
     Active Substance: WARFARIN SODIUM
     Indication: Factor V deficiency
  3. ERYTHROMYCIN [Interacting]
     Active Substance: ERYTHROMYCIN
     Indication: Periorbital cellulitis
     Dosage: 250 MG, 4X PER DAY
     Route: 048
  4. ERYTHROMYCIN [Interacting]
     Active Substance: ERYTHROMYCIN
     Indication: Antibiotic therapy
  5. ERYTHROMYCIN [Interacting]
     Active Substance: ERYTHROMYCIN
     Indication: Chalazion
  6. METRONIDAZOLE [Interacting]
     Active Substance: METRONIDAZOLE
     Indication: Chalazion
     Dosage: 400 MG,TID
     Route: 048
  7. METRONIDAZOLE [Interacting]
     Active Substance: METRONIDAZOLE
     Indication: Periorbital cellulitis
  8. METRONIDAZOLE [Interacting]
     Active Substance: METRONIDAZOLE
     Indication: Antibiotic therapy
  9. CIPROFLOXACIN [Interacting]
     Active Substance: CIPROFLOXACIN
     Indication: Chalazion
     Dosage: 750 MG, 2X PER DAY
     Route: 048
  10. CIPROFLOXACIN [Interacting]
     Active Substance: CIPROFLOXACIN
     Indication: Periorbital cellulitis
  11. CIPROFLOXACIN [Interacting]
     Active Substance: CIPROFLOXACIN
     Indication: Antibiotic therapy
  12. CLOPIDOGREL BISULFATE [Interacting]
     Active Substance: CLOPIDOGREL BISULFATE
     Indication: Chest pain
     Dosage: 300 MG, QD
     Route: 048
  13. CLOPIDOGREL BISULFATE [Interacting]
     Active Substance: CLOPIDOGREL BISULFATE
     Indication: Antiplatelet therapy
     Dosage: 75 MG, QD
     Route: 048
  14. TEICOPLANIN [Interacting]
     Active Substance: TEICOPLANIN
     Indication: Chalazion
     Dosage: 400 MG, QD (PARENTERAL)
     Route: 030
  15. TEICOPLANIN [Interacting]
     Active Substance: TEICOPLANIN
     Indication: Periorbital cellulitis
  16. TEICOPLANIN [Interacting]
     Active Substance: TEICOPLANIN
     Indication: Antibiotic therapy
  17. MEROPENEM [Interacting]
     Active Substance: MEROPENEM
     Indication: Chalazion
     Dosage: 2 G, 2X PER DAY
     Route: 042
  18. MEROPENEM [Interacting]
     Active Substance: MEROPENEM
     Indication: Periorbital cellulitis
  19. MEROPENEM [Interacting]
     Active Substance: MEROPENEM
     Indication: Antibiotic therapy
  20. ASPIRIN [Interacting]
     Active Substance: ASPIRIN
     Indication: Chest pain
     Dosage: 300 MG, QD
  21. ASPIRIN [Interacting]
     Active Substance: ASPIRIN
     Indication: Antiplatelet therapy
     Dosage: 75 MG, QD

REACTIONS (11)
  - Spontaneous hyphaema [Unknown]
  - Eye pain [Unknown]
  - Visual impairment [Unknown]
  - Visual acuity reduced [Unknown]
  - Intraocular pressure increased [Unknown]
  - Headache [Unknown]
  - Decreased appetite [Unknown]
  - Pyrexia [Unknown]
  - Nausea [Unknown]
  - International normalised ratio increased [Unknown]
  - Potentiating drug interaction [Unknown]
